FAERS Safety Report 10120431 (Version 1)
Quarter: 2014Q2

REPORT INFORMATION
  Report Type: Spontaneous
  Country: CA (occurrence: CA)
  Receive Date: 20140425
  Receipt Date: 20140425
  Transmission Date: 20141212
  Serious: Yes (Hospitalization, Other)
  Sender: FDA-Public Use
  Company Number: CA-PFIZER INC-2014111352

PATIENT
  Age: 77 Year
  Sex: Male

DRUGS (15)
  1. REVATIO [Suspect]
     Dosage: 20 MG, 3X/DAY
     Route: 048
  2. DILTIAZEM [Interacting]
     Dosage: 120 MG, 1X/DAY
     Route: 042
  3. FUROSEMIDE [Interacting]
     Dosage: 120 MG, 2X/DAY
     Route: 048
  4. FUROSEMIDE [Interacting]
     Dosage: 60 MG, 2X/DAY
     Route: 042
  5. ACETYLCYSTEINE [Concomitant]
     Dosage: UNK
     Route: 055
  6. ASPIRIN ^BAYER^ [Concomitant]
     Dosage: UNK
  7. ADVAIR [Concomitant]
     Dosage: UNK
  8. ATORVASTATIN CALCIUM [Concomitant]
     Dosage: UNK
  9. CLOPIDOGREL [Concomitant]
     Dosage: UNK
  10. DOMPERIDONE [Concomitant]
     Dosage: UNK
  11. FLUTICASONE [Concomitant]
     Dosage: UNK
  12. SPIRIVA [Concomitant]
     Dosage: UNK
  13. FUROSEMIDE [Concomitant]
     Dosage: UNK
  14. VITAMIN B12 [Concomitant]
     Dosage: UNK
  15. L-ARGININE [Concomitant]
     Dosage: UNK

REACTIONS (4)
  - Deafness bilateral [Recovered/Resolved]
  - Drug interaction [Recovered/Resolved]
  - Ototoxicity [Recovered/Resolved]
  - Tinnitus [Recovered/Resolved]
